FAERS Safety Report 5422948-1 (Version None)
Quarter: 2007Q3

REPORT INFORMATION
  Report Type: 
  Country: None (occurrence: None)
  Receive Date: 20070822
  Receipt Date: 20070817
  Transmission Date: 20080115
  Serious: Yes (Hospitalization)
  Sender: FDA-Public Use
  Company Number: SE-ABBOTT-07P-150-0367970-00

PATIENT
  Sex: Male

DRUGS (3)
  1. HUMIRA [Suspect]
     Indication: RHEUMATOID ARTHRITIS
     Route: 058
     Dates: start: 20040816, end: 20041101
  2. ETANERCEPT [Suspect]
     Indication: RHEUMATOID ARTHRITIS
     Route: 058
     Dates: start: 20030630, end: 20031209
  3. PREDNISOLONE [Concomitant]
     Indication: DRUG USE FOR UNKNOWN INDICATION
     Route: 048

REACTIONS (7)
  - DYSPHASIA [None]
  - ENCEPHALITIS VIRAL [None]
  - HUMAN HERPES VIRUS 6 SEROLOGY [None]
  - MEMORY IMPAIRMENT [None]
  - MYELITIS [None]
  - TUNNEL VISION [None]
  - UNEVALUABLE EVENT [None]
